FAERS Safety Report 4388685-X (Version None)
Quarter: 2004Q2

REPORT INFORMATION
  Report Type: 
  Country: None (occurrence: None)
  Receive Date: 20040624
  Receipt Date: 20040615
  Transmission Date: 20050107
  Serious: Yes (Death, Hospitalization)
  Sender: FDA-Public Use
  Company Number: 2004040658

PATIENT
  Age: 42 Year
  Sex: Female

DRUGS (3)
  1. GEODON [Suspect]
     Indication: BIPOLAR DISORDER
     Dosage: 120 MG (60 MG, 2 IN 1 D), ORAL
     Route: 048
  2. TRAZODONE HCL [Concomitant]
  3. ALL OTHER THERAPEUTIC PRODUCTS (ALL OTHER THERAPEUTIC PRODUCTS) [Concomitant]

REACTIONS (4)
  - BETA HAEMOLYTIC STREPTOCOCCAL INFECTION [None]
  - CARDIAC ARREST [None]
  - MIGRAINE [None]
  - PYREXIA [None]
